FAERS Safety Report 5191331-9 (Version None)
Quarter: 2006Q4

REPORT INFORMATION
  Report Type: 
  Country: None (occurrence: None)
  Receive Date: 20061219
  Receipt Date: 20061219
  Transmission Date: 20070319
  Serious: Yes (Life-Threatening, Hospitalization)
  Sender: FDA-Public Use
  Company Number: None

PATIENT
  Age: 65 Year
  Sex: Female
  Weight: 98.2 kg

DRUGS (2)
  1. RITUXAN [Suspect]
     Indication: RHEUMATOID ARTHRITIS
     Dosage: 1000MG IV DAY 1;  1000MG  IV  DAY 15
     Route: 042
     Dates: start: 20061005
  2. RITUXAN [Suspect]
     Indication: RHEUMATOID ARTHRITIS
     Dosage: 1000MG IV DAY 1;  1000MG  IV  DAY 15
     Route: 042
     Dates: start: 20061019

REACTIONS (2)
  - HEPATOSPLENOMEGALY [None]
  - INTESTINAL OBSTRUCTION [None]
